FAERS Safety Report 24264869 (Version 1)
Quarter: 2024Q3

REPORT INFORMATION
  Report Type: Spontaneous
  Country: US (occurrence: US)
  Receive Date: 20240829
  Receipt Date: 20240829
  Transmission Date: 20241017
  Serious: Yes (Disabling)
  Sender: MERCK
  Company Number: US-009507513-2408USA007991

PATIENT
  Age: 85 Year
  Sex: Male

DRUGS (4)
  1. KEYTRUDA [Suspect]
     Active Substance: PEMBROLIZUMAB
     Indication: Bladder cancer
     Dosage: UNK
     Route: 042
     Dates: start: 202312, end: 202406
  2. METFORMIN [Concomitant]
     Active Substance: METFORMIN HYDROCHLORIDE
  3. GLIPIZIDE [Concomitant]
     Active Substance: GLIPIZIDE
  4. ASPIRIN [Concomitant]
     Active Substance: ASPIRIN

REACTIONS (6)
  - Peroneal nerve palsy [Not Recovered/Not Resolved]
  - Myalgia [Not Recovered/Not Resolved]
  - Eye allergy [Recovered/Resolved]
  - Muscular weakness [Recovered/Resolved]
  - Muscle atrophy [Recovered/Resolved]
  - Dry eye [Recovered/Resolved]

NARRATIVE: CASE EVENT DATE: 20240401
